FAERS Safety Report 6714640-8 (Version None)
Quarter: 2010Q2

REPORT INFORMATION
  Report Type: 
  Country: None (occurrence: None)
  Receive Date: 20100507
  Receipt Date: 20100427
  Transmission Date: 20101027
  Serious: No
  Sender: FDA-Public Use
  Company Number: 2009BI026211

PATIENT
  Age: 31 Year
  Sex: Female

DRUGS (2)
  1. TYSABRI [Suspect]
     Indication: MULTIPLE SCLEROSIS
     Route: 042
     Dates: start: 20090815
  2. TYSABRI [Suspect]
     Indication: CROHN'S DISEASE
     Route: 042
     Dates: start: 20090815

REACTIONS (14)
  - CROHN'S DISEASE [None]
  - DIZZINESS [None]
  - DRUG ERUPTION [None]
  - EAR CONGESTION [None]
  - FUNGAL INFECTION [None]
  - GASTRIC DISORDER [None]
  - HEADACHE [None]
  - HYPOAESTHESIA [None]
  - OROPHARYNGEAL PAIN [None]
  - PARAESTHESIA [None]
  - PARANASAL SINUS HYPERSECRETION [None]
  - SINUSITIS [None]
  - STRESS [None]
  - URINARY TRACT INFECTION [None]
